FAERS Safety Report 6009889-6 (Version None)
Quarter: 2008Q4

REPORT INFORMATION
  Report Type: 
  Country: None (occurrence: None)
  Receive Date: 20081217
  Receipt Date: 20081212
  Transmission Date: 20090506
  Serious: Yes (Other)
  Sender: FDA-Public Use
  Company Number: DE-JNJCH-2008056343

PATIENT
  Sex: Female
  Weight: 60 kg

DRUGS (1)
  1. NICORETTE PFLASTER 16,6MG [Suspect]
     Indication: SMOKING CESSATION THERAPY
     Dosage: TEXT:16.6 MG UNSPECIFIED
     Route: 062
     Dates: start: 20081128, end: 20081129

REACTIONS (4)
  - BLISTER [None]
  - ERYTHEMA [None]
  - PRURITUS [None]
  - SWELLING [None]
